FAERS Safety Report 4284550-7 (Version None)
Quarter: 2004Q1

REPORT INFORMATION
  Report Type: 
  Country: None (occurrence: None)
  Receive Date: 20040130
  Receipt Date: 20040116
  Transmission Date: 20041129
  Serious: Yes (Hospitalization)
  Sender: FDA-Public Use
  Company Number: BRO-007099

PATIENT
  Age: 40 Year
  Sex: Male

DRUGS (4)
  1. IOPAMIDOL [Suspect]
     Indication: NERVOUS SYSTEM DISORDER
     Dosage: 100 ML
     Route: 042
  2. ... [Concomitant]
  3. PREDNISOLONE [Concomitant]
  4. ATARAX [Concomitant]

REACTIONS (3)
  - ACUTE GENERALISED EXANTHEMATOUS PUSTULOSIS [None]
  - CONDITION AGGRAVATED [None]
  - HYPERTHERMIA [None]
